FAERS Safety Report 23452589 (Version 2)
Quarter: 2024Q2

REPORT INFORMATION
  Report Type: Spontaneous
  Country: JP (occurrence: JP)
  Receive Date: 20240129
  Receipt Date: 20240408
  Transmission Date: 20240716
  Serious: Yes (Other)
  Sender: FDA-Public Use
  Company Number: JP-TEVA-VS-3148447

PATIENT
  Age: 78 Year
  Sex: Female
  Weight: 50.3 kg

DRUGS (8)
  1. AZILECT [Suspect]
     Active Substance: RASAGILINE MESYLATE
     Indication: Parkinson^s disease
     Route: 048
     Dates: start: 20230714, end: 20230907
  2. AZILECT [Suspect]
     Active Substance: RASAGILINE MESYLATE
     Indication: Parkinson^s disease
     Route: 048
     Dates: start: 20230714, end: 20230907
  3. AZILECT [Suspect]
     Active Substance: RASAGILINE MESYLATE
     Indication: Parkinson^s disease
     Route: 048
     Dates: start: 20230908, end: 20230922
  4. VONOPRAZAN FUMARATE [Concomitant]
     Active Substance: VONOPRAZAN FUMARATE
     Indication: Product used for unknown indication
     Route: 065
     Dates: start: 20220316
  5. CARBIDOPA\LEVODOPA [Concomitant]
     Active Substance: CARBIDOPA\LEVODOPA
     Indication: Product used for unknown indication
     Route: 065
     Dates: start: 20170418
  6. ZONISAMIDE [Concomitant]
     Active Substance: ZONISAMIDE
     Indication: Product used for unknown indication
     Route: 065
     Dates: start: 20170425
  7. CELECOXIB [Concomitant]
     Active Substance: CELECOXIB
     Indication: Product used for unknown indication
     Route: 065
  8. LIMAPROST [Concomitant]
     Active Substance: LIMAPROST
     Indication: Product used for unknown indication
     Route: 065

REACTIONS (4)
  - Loss of consciousness [Recovered/Resolved]
  - Head injury [Recovered/Resolved]
  - Depression [Unknown]
  - Orthostatic hypotension [Unknown]

NARRATIVE: CASE EVENT DATE: 20230920
